FAERS Safety Report 8808491 (Version 2)
Quarter: 2012Q4

REPORT INFORMATION
  Report Type: Spontaneous
  Country: US (occurrence: None)
  Receive Date: 20120920
  Receipt Date: 20121206
  Transmission Date: 20130627
  Serious: Yes (Hospitalization)
  Sender: FDA-Public Use
  Company Number: 2012CP000112

PATIENT
  Age: 32 Year
  Sex: Male
  Weight: 86 kg

DRUGS (14)
  1. OFIRMEV [Suspect]
     Indication: POSTOPERATIVE PAIN
     Route: 042
     Dates: start: 20120913, end: 20120913
  2. INVANZ [Concomitant]
  3. FAMOTIDINE [Concomitant]
  4. METOCLOPRAMIDE [Concomitant]
  5. ONDANSETRON [Concomitant]
  6. FENTANYL [Concomitant]
  7. VERSED [Concomitant]
  8. DEMEROL [Concomitant]
  9. ROCURONIUM [Concomitant]
  10. ROBINUL [Concomitant]
  11. NEOSTIGMINE [Concomitant]
  12. PROPOFOL [Concomitant]
  13. LIDOCAINE [Concomitant]
  14. TORADOL [Concomitant]

REACTIONS (5)
  - Hypotension [None]
  - Chest discomfort [None]
  - Chest pain [None]
  - Electrocardiogram T wave amplitude decreased [None]
  - Electrocardiogram T wave inversion [None]
